FAERS Safety Report 4441007-8 (Version None)
Quarter: 2004Q3

REPORT INFORMATION
  Report Type: 
  Country: None (occurrence: None)
  Receive Date: 20040901
  Receipt Date: 20040901
  Transmission Date: 20050211
  Serious: Yes (Other)
  Sender: FDA-Public Use
  Company Number: None

PATIENT
  Age: 24 Year
  Sex: Female
  Weight: 61.2356 kg

DRUGS (4)
  1. ORTHO EVRA [Suspect]
     Indication: ACNE
     Dosage: 1 EACH WEEK
     Route: 062
     Dates: start: 20040101, end: 20040826
  2. ORTHO EVRA [Suspect]
     Indication: MENSTRUATION IRREGULAR
     Dosage: 1 EACH WEEK
     Route: 062
     Dates: start: 20040101, end: 20040826
  3. REQUIP [Concomitant]
  4. FOLATE [Concomitant]

REACTIONS (3)
  - DRUG EFFECT DECREASED [None]
  - HIRSUTISM [None]
  - PRURITUS [None]
